FAERS Safety Report 5071215-7 (Version None)
Quarter: 2006Q3

REPORT INFORMATION
  Report Type: 
  Country: None (occurrence: None)
  Receive Date: 20060714
  Receipt Date: 20060608
  Transmission Date: 20061208
  Serious: No
  Sender: FDA-Public Use
  Company Number: 2006SP002356

PATIENT
  Age: 79 Year
  Sex: Male
  Weight: 105.2345 kg

DRUGS (9)
  1. LUNESTA [Suspect]
     Indication: INSOMNIA
     Dosage: SEE IMAGE
     Route: 048
     Dates: start: 20060501, end: 20060607
  2. LUNESTA [Suspect]
     Indication: INSOMNIA
     Dosage: SEE IMAGE
     Route: 048
     Dates: start: 20060608
  3. SINGULAIR [Concomitant]
  4. OXYGEN [Concomitant]
  5. ROZEREM [Concomitant]
  6. RABEPRAZOLE SODIUM [Concomitant]
  7. HYTRIN [Concomitant]
  8. SULFANILAMIDE [Concomitant]
  9. FUROSEMIDE [Concomitant]

REACTIONS (1)
  - INSOMNIA [None]
